FAERS Safety Report 22598540 (Version 1)
Quarter: 2023Q2

REPORT INFORMATION
  Report Type: Spontaneous
  Country: CN (occurrence: CN)
  Receive Date: 20230614
  Receipt Date: 20230614
  Transmission Date: 20230722
  Serious: Yes (Hospitalization, Disabling, Other)
  Sender: FDA-Public Use
  Company Number: None

PATIENT
  Age: 62 Year
  Sex: Female
  Weight: 55 kg

DRUGS (2)
  1. CYCLOPHOSPHAMIDE [Suspect]
     Active Substance: CYCLOPHOSPHAMIDE
     Indication: Invasive ductal breast carcinoma
     Dosage: 1000 MG, QD
     Route: 041
     Dates: start: 20230526, end: 20230526
  2. PIRARUBICIN HYDROCHLORIDE [Suspect]
     Active Substance: PIRARUBICIN HYDROCHLORIDE
     Indication: Invasive ductal breast carcinoma
     Dosage: 90 MG, QD
     Route: 041
     Dates: start: 20230526, end: 20230526

REACTIONS (10)
  - Eating disorder [Recovering/Resolving]
  - Nausea [Recovering/Resolving]
  - Vomiting [Recovering/Resolving]
  - Myelosuppression [Recovering/Resolving]
  - Mental disorder [Unknown]
  - Poor quality sleep [Unknown]
  - Retching [Unknown]
  - Discomfort [Unknown]
  - Depressed mood [Unknown]
  - Asthenia [Unknown]

NARRATIVE: CASE EVENT DATE: 20230528
